FAERS Safety Report 9217993 (Version 1)
Quarter: 2013Q2

REPORT INFORMATION
  Report Type: Spontaneous
  Country: GB (occurrence: GB)
  Receive Date: 20130408
  Receipt Date: 20130408
  Transmission Date: 20140414
  Serious: Yes (Other)
  Sender: FDA-Public Use
  Company Number: GB-ROCHE-1209497

PATIENT
  Sex: Female

DRUGS (5)
  1. HERCEPTIN [Suspect]
     Indication: BREAST CANCER
     Route: 065
  2. TAXOTERE [Concomitant]
  3. FLUOROURACIL [Concomitant]
  4. EPIRUBICIN [Concomitant]
  5. CYCLOPHOSPHAMIDE [Concomitant]

REACTIONS (8)
  - Parkinsonism [Unknown]
  - Dizziness [Unknown]
  - Dysarthria [Unknown]
  - Vision blurred [Unknown]
  - Palpitations [Unknown]
  - Tremor [Unknown]
  - Fatigue [Unknown]
  - Asthenopia [Unknown]
